FAERS Safety Report 8144507-2 (Version None)
Quarter: 2012Q1

REPORT INFORMATION
  Report Type: 
  Country: None (occurrence: None)
  Receive Date: 20120217
  Receipt Date: 20120203
  Transmission Date: 20120608
  Serious: Yes (Life-Threatening, Hospitalization)
  Sender: FDA-Public Use
  Company Number: FI-ROCHE-1037088

PATIENT
  Sex: Male

DRUGS (1)
  1. LARIAM [Suspect]
     Indication: MALARIA
     Route: 048
     Dates: start: 20120123, end: 20120123

REACTIONS (12)
  - SUICIDAL IDEATION [None]
  - ANXIETY [None]
  - HOSTILITY [None]
  - PSYCHOTIC DISORDER [None]
  - MOOD SWINGS [None]
  - PANIC DISORDER [None]
  - HALLUCINATION [None]
  - FEAR OF DISEASE [None]
  - RESTLESSNESS [None]
  - AGITATION [None]
  - CONFUSIONAL STATE [None]
  - DEPRESSION [None]
